FAERS Safety Report 4625926-5 (Version None)
Quarter: 2005Q1

REPORT INFORMATION
  Report Type: 
  Country: None (occurrence: None)
  Receive Date: 20050330
  Receipt Date: 20050311
  Transmission Date: 20050727
  Serious: Yes (Other)
  Sender: FDA-Public Use
  Company Number: US_0402100535

PATIENT
  Age: 56 Year
  Sex: Female
  Weight: 96 kg

DRUGS (7)
  1. ZYPREXA [Suspect]
     Indication: SOMNOLENCE
     Dates: start: 20021001, end: 20031001
  2. PROZAC [Suspect]
     Indication: DEPRESSION
  3. LEXAPRO [Concomitant]
  4. TOPAMAX [Concomitant]
  5. LORAZEPAM [Concomitant]
  6. DEPAKOTE [Concomitant]
  7. PREMARIN [Concomitant]

REACTIONS (42)
  - ABDOMINAL DISTENSION [None]
  - ACTIVITIES OF DAILY LIVING IMPAIRED [None]
  - ANGINA UNSTABLE [None]
  - BLOOD PRESSURE INCREASED [None]
  - BREAST CANCER FEMALE [None]
  - BREAST CANCER METASTATIC [None]
  - BREAST CANCER STAGE II [None]
  - BREAST MICROCALCIFICATION [None]
  - BREAST PAIN [None]
  - CHEST PAIN [None]
  - DEPRESSION [None]
  - DIFFICULTY IN WALKING [None]
  - DIZZINESS [None]
  - DRUG INEFFECTIVE [None]
  - DYSPNOEA [None]
  - ELECTROCARDIOGRAM T WAVE INVERSION [None]
  - EMOTIONAL DISTRESS [None]
  - ERYTHEMA [None]
  - FATIGUE [None]
  - FOOD CRAVING [None]
  - HEADACHE [None]
  - HOT FLUSH [None]
  - HYPERTENSION [None]
  - INCREASED APPETITE [None]
  - INSOMNIA [None]
  - ISCHAEMIA [None]
  - MASTITIS [None]
  - MECHANICAL COMPLICATION OF IMPLANT [None]
  - MYOCARDIAL INFARCTION [None]
  - OESTROGEN RECEPTOR ASSAY POSITIVE [None]
  - PAIN [None]
  - POLLAKIURIA [None]
  - POST PROCEDURAL COMPLICATION [None]
  - PROGESTERONE RECEPTOR ASSAY POSITIVE [None]
  - RENAL PAIN [None]
  - RHINITIS [None]
  - SENSATION OF PRESSURE [None]
  - STRESS [None]
  - THIRST [None]
  - TINNITUS [None]
  - UPPER RESPIRATORY TRACT INFECTION [None]
  - WEIGHT INCREASED [None]
